FAERS Safety Report 19914218 (Version 2)
Quarter: 2021Q4

REPORT INFORMATION
  Report Type: Spontaneous
  Country: JP (occurrence: JP)
  Receive Date: 20211004
  Receipt Date: 20211212
  Transmission Date: 20220303
  Serious: Yes (Hospitalization, Other)
  Sender: FDA-Public Use
  Company Number: JP-BRISTOL-MYERS SQUIBB COMPANY-BMS-2021-099881

PATIENT
  Age: 65 Year
  Sex: Female
  Weight: 33 kg

DRUGS (2)
  1. OPDIVO [Suspect]
     Active Substance: NIVOLUMAB
     Indication: Gastric cancer
     Dosage: 240 MILLIGRAM
     Route: 041
     Dates: end: 20210913
  2. ANAMORELIN [Suspect]
     Active Substance: ANAMORELIN
     Indication: Cachexia
     Dosage: 100 MILLIGRAM, QD
     Route: 048
     Dates: start: 20210702, end: 20210824

REACTIONS (2)
  - Renal disorder [Recovered/Resolved]
  - Malignant neoplasm progression [Unknown]

NARRATIVE: CASE EVENT DATE: 20210924
